FAERS Safety Report 9417784 (Version 1)
Quarter: 2013Q3

REPORT INFORMATION
  Report Type: Spontaneous
  Country: BR (occurrence: BR)
  Receive Date: 20130724
  Receipt Date: 20130724
  Transmission Date: 20140515
  Serious: Yes (Hospitalization, Other)
  Sender: FDA-Public Use
  Company Number: BR-ASTRAZENECA-2013SE53001

PATIENT
  Age: 59 Year
  Sex: Male
  Weight: 69.8 kg

DRUGS (13)
  1. ATENOL [Suspect]
     Dosage: DAILY
     Route: 048
     Dates: start: 2003
  2. CRESTOR [Suspect]
     Indication: BLOOD TRIGLYCERIDES INCREASED
     Route: 048
     Dates: start: 200812, end: 2011
  3. CRESTOR [Suspect]
     Indication: BLOOD CHOLESTEROL INCREASED
     Route: 048
     Dates: start: 200812, end: 2011
  4. CRESTOR [Suspect]
     Indication: BLOOD TRIGLYCERIDES INCREASED
     Route: 048
     Dates: start: 2011
  5. CRESTOR [Suspect]
     Indication: BLOOD CHOLESTEROL INCREASED
     Route: 048
     Dates: start: 2011
  6. BRILINTA [Suspect]
     Indication: ACUTE MYOCARDIAL INFARCTION
     Route: 048
     Dates: start: 201307
  7. ALPHAGAN [Concomitant]
     Indication: INTRAOCULAR PRESSURE TEST
     Dosage: TWO TIMES A DAY
     Dates: start: 2004
  8. ASA [Concomitant]
     Dates: start: 2004
  9. PLAVIX [Concomitant]
     Indication: THROMBOSIS PROPHYLAXIS
     Dates: start: 2004, end: 2005
  10. PLAVIX [Concomitant]
     Indication: THROMBOSIS PROPHYLAXIS
     Dates: start: 200811, end: 201307
  11. GLIFAGE XR [Concomitant]
     Indication: DIABETES MELLITUS
     Dates: start: 2007
  12. ARADOIS [Concomitant]
     Dosage: DAILY
     Dates: start: 2008
  13. LESCOL [Concomitant]
     Dates: end: 200812

REACTIONS (7)
  - Chest pain [Recovered/Resolved]
  - Diabetes mellitus [Recovered/Resolved]
  - Device occlusion [Recovered/Resolved]
  - Acute myocardial infarction [Recovered/Resolved]
  - Intraocular pressure increased [Recovering/Resolving]
  - Weight decreased [Recovering/Resolving]
  - Off label use [Not Recovered/Not Resolved]
